FAERS Safety Report 7320452-7 (Version None)
Quarter: 2011Q1

REPORT INFORMATION
  Report Type: 
  Country: None (occurrence: None)
  Receive Date: 20110228
  Receipt Date: 20110221
  Transmission Date: 20110831
  Serious: Yes (Other)
  Sender: FDA-Public Use
  Company Number: B0698425A

PATIENT
  Age: 5 Decade
  Sex: Male

DRUGS (3)
  1. PAXIL [Suspect]
     Indication: DEPRESSION
     Dosage: 20MG PER DAY
     Route: 048
  2. DEPAS [Concomitant]
  3. LEXOTAN [Concomitant]

REACTIONS (3)
  - SLEEP TALKING [None]
  - MUSCLE SPASMS [None]
  - SCREAMING [None]
